FAERS Safety Report 9187902 (Version 10)
Quarter: 2014Q3

REPORT INFORMATION
  Report Type: Report from Study
  Country: BR (occurrence: BR)
  Receive Date: 20130325
  Receipt Date: 20140922
  Transmission Date: 20150326
  Serious: Yes (Hospitalization, Disabling, Other)
  Sender: FDA-Public Use
  Company Number: BR-ROCHE-646038

PATIENT
  Age: 57 Year
  Sex: Female
  Weight: 78 kg

DRUGS (50)
  1. MABTHERA [Suspect]
     Active Substance: RITUXIMAB
     Route: 042
  2. FLUOXETINE [Suspect]
     Active Substance: FLUOXETINE\FLUOXETINE HYDROCHLORIDE
     Route: 065
  3. METHOTREXATE [Concomitant]
     Active Substance: METHOTREXATE
     Dosage: EVERY TUESDAY
     Route: 065
  4. FOLACIN [Concomitant]
     Active Substance: FOLIC ACID
     Route: 065
  5. ABLOK [Concomitant]
     Active Substance: ATENOLOL
     Route: 065
  6. FOLIC ACID. [Concomitant]
     Active Substance: FOLIC ACID
     Indication: RHEUMATOID ARTHRITIS
     Route: 065
  7. CITALOPRAM [Concomitant]
     Active Substance: CITALOPRAM HYDROBROMIDE
  8. MABTHERA [Suspect]
     Active Substance: RITUXIMAB
     Route: 042
     Dates: start: 20120314, end: 20120328
  9. MABTHERA [Suspect]
     Active Substance: RITUXIMAB
     Route: 042
  10. MIOFLEX A [Concomitant]
     Indication: BONE PAIN
     Route: 065
  11. MABTHERA [Suspect]
     Active Substance: RITUXIMAB
     Indication: RHEUMATOID ARTHRITIS
     Dosage: DOSE: 100 MG/10 ML,HALF A VIAL ON FIRST INFUSION AND THE OTHER HALF 15 DAYS LATER
     Route: 042
     Dates: start: 20090201, end: 20090215
  12. MABTHERA [Suspect]
     Active Substance: RITUXIMAB
     Dosage: SECOND DOSE OF CYCLE, DATE OF MOST RECENT INFUSION : APRIL 2014.
     Route: 042
     Dates: start: 20130415, end: 20130430
  13. DIOVAN [Concomitant]
     Active Substance: VALSARTAN
     Indication: HYPERTENSION
     Dosage: DOSE: 160+5 MG.
     Route: 065
  14. DIOVAN AMLO [Concomitant]
     Active Substance: AMLODIPINE\VALSARTAN
     Indication: HYPERTENSION
     Route: 065
  15. NORVASC [Concomitant]
     Active Substance: AMLODIPINE BESYLATE
     Indication: RHEUMATOID ARTHRITIS
     Route: 065
  16. CEWIN [Concomitant]
     Active Substance: ASCORBIC ACID
     Dosage: 30 DROPS 200 MG, TWICE A DAY
     Route: 065
  17. MABTHERA [Suspect]
     Active Substance: RITUXIMAB
     Route: 042
     Dates: start: 20110304, end: 20110318
  18. METHOTREXATE [Concomitant]
     Active Substance: METHOTREXATE
     Route: 065
  19. METHOTREXATE [Concomitant]
     Active Substance: METHOTREXATE
     Route: 065
  20. FOLACIN [Concomitant]
     Active Substance: FOLIC ACID
     Route: 065
  21. MIOFLEX A [Concomitant]
     Dosage: ODSAGE AS REQUIRED
     Route: 065
  22. FUROSEMIDE. [Concomitant]
     Active Substance: FUROSEMIDE
     Route: 065
  23. AMLODIPINE [Concomitant]
     Active Substance: AMLODIPINE BESYLATE
     Route: 065
  24. NORIPURUM [Concomitant]
     Active Substance: IRON POLYMALTOSE
     Route: 065
     Dates: start: 201310
  25. LYRICA [Concomitant]
     Active Substance: PREGABALIN
  26. MABTHERA [Suspect]
     Active Substance: RITUXIMAB
     Dosage: DOSE: 100MG/10ML
     Route: 042
     Dates: start: 20090801, end: 20090815
  27. MABTHERA [Suspect]
     Active Substance: RITUXIMAB
     Route: 042
     Dates: start: 20100201, end: 20100215
  28. MABTHERA [Suspect]
     Active Substance: RITUXIMAB
     Route: 042
     Dates: start: 20110908, end: 20110922
  29. PREDNISONE. [Suspect]
     Active Substance: PREDNISONE
     Route: 065
  30. OMEPRAZOLE. [Concomitant]
     Active Substance: OMEPRAZOLE
     Route: 065
  31. DIOVAN [Concomitant]
     Active Substance: VALSARTAN
     Route: 065
  32. GLIFAGE [Concomitant]
     Active Substance: METFORMIN HYDROCHLORIDE
     Route: 065
  33. NEUTROFER [Concomitant]
     Active Substance: FERROUS BISGLYCINATE
     Route: 065
  34. FLUOXETINE [Suspect]
     Active Substance: FLUOXETINE\FLUOXETINE HYDROCHLORIDE
     Indication: PRODUCT USED FOR UNKNOWN INDICATION
     Route: 065
  35. OMEPRAZOLE. [Concomitant]
     Active Substance: OMEPRAZOLE
     Route: 065
  36. NAPROXEN. [Concomitant]
     Active Substance: NAPROXEN
     Route: 065
  37. DEPURA [Concomitant]
     Active Substance: CHOLECALCIFEROL
  38. MABTHERA [Suspect]
     Active Substance: RITUXIMAB
     Route: 042
     Dates: start: 20120928, end: 20121012
  39. PREDNISONE. [Suspect]
     Active Substance: PREDNISONE
     Indication: PRODUCT USED FOR UNKNOWN INDICATION
     Route: 065
  40. RIVOTRIL [Concomitant]
     Active Substance: CLONAZEPAM
     Route: 065
  41. FOLACIN [Concomitant]
     Active Substance: FOLIC ACID
     Route: 065
  42. VITAMIN E [Concomitant]
     Active Substance: .ALPHA.-TOCOPHEROL
  43. DIOVAN [Concomitant]
     Active Substance: VALSARTAN
  44. MABTHERA [Suspect]
     Active Substance: RITUXIMAB
     Route: 042
     Dates: start: 20100819, end: 20100910
  45. RIVOTRIL [Concomitant]
     Active Substance: CLONAZEPAM
     Route: 065
  46. METHOTREXATE [Concomitant]
     Active Substance: METHOTREXATE
     Indication: RHEUMATOID ARTHRITIS
     Route: 065
  47. METHOTREXATE [Concomitant]
     Active Substance: METHOTREXATE
     Dosage: DOSE: 5 MG TABLET, (4 TABLETS/DOSE)
     Route: 065
  48. ACETAMINOPHEN. [Concomitant]
     Active Substance: ACETAMINOPHEN
     Indication: PREMEDICATION
  49. VITAMIN B12 [Concomitant]
     Active Substance: CYANOCOBALAMIN
  50. NEUTROFER [Concomitant]
     Active Substance: FERROUS BISGLYCINATE
     Dosage: 15 DROPS 250 MG EACH DAY
     Route: 065

REACTIONS (44)
  - Urinary tract infection [Recovered/Resolved]
  - Groin pain [Recovering/Resolving]
  - Hyperglycaemia [Unknown]
  - Alopecia [Not Recovered/Not Resolved]
  - Limb asymmetry [Unknown]
  - Hip arthroplasty [Recovered/Resolved]
  - Spinal disorder [Unknown]
  - Muscular weakness [Not Recovered/Not Resolved]
  - Pain in extremity [Not Recovered/Not Resolved]
  - Crying [Not Recovered/Not Resolved]
  - Arthralgia [Not Recovered/Not Resolved]
  - Bone erosion [Recovered/Resolved]
  - Gait disturbance [Not Recovered/Not Resolved]
  - Limb deformity [Not Recovered/Not Resolved]
  - Weight decreased [Recovered/Resolved]
  - Diabetes mellitus [Unknown]
  - No therapeutic response [Unknown]
  - Peripheral swelling [Recovering/Resolving]
  - Arthralgia [Recovering/Resolving]
  - Pain in extremity [Recovering/Resolving]
  - Anaemia [Unknown]
  - Somnolence [Unknown]
  - Sleep disorder [Unknown]
  - Formication [Recovered/Resolved]
  - Dyspnoea [Recovered/Resolved]
  - Contusion [Not Recovered/Not Resolved]
  - Pain [Not Recovered/Not Resolved]
  - Bone loss [Not Recovered/Not Resolved]
  - Arthralgia [Not Recovered/Not Resolved]
  - Muscle atrophy [Unknown]
  - Arthropathy [Not Recovered/Not Resolved]
  - Bone pain [Not Recovered/Not Resolved]
  - Peripheral swelling [Not Recovered/Not Resolved]
  - Anxiety [Not Recovered/Not Resolved]
  - Tachycardia [Recovered/Resolved]
  - Bone erosion [Unknown]
  - Gastric disorder [Not Recovered/Not Resolved]
  - Osteoarthritis [Unknown]
  - Musculoskeletal pain [Recovering/Resolving]
  - Dyspnoea [Recovering/Resolving]
  - Pain [Not Recovered/Not Resolved]
  - Weight increased [Recovering/Resolving]
  - Tachycardia [Not Recovered/Not Resolved]
  - Insomnia [Not Recovered/Not Resolved]

NARRATIVE: CASE EVENT DATE: 2009
